FAERS Safety Report 4658169-X (Version None)
Quarter: 2005Q2

REPORT INFORMATION
  Report Type: 
  Country: None (occurrence: None)
  Receive Date: 20050509
  Receipt Date: 20050426
  Transmission Date: 20051028
  Serious: Yes (Other)
  Sender: FDA-Public Use
  Company Number: 2005065447

PATIENT
  Sex: Female

DRUGS (5)
  1. CELEBREX [Suspect]
     Indication: ILL-DEFINED DISORDER
     Dosage: 200 MG
     Dates: start: 20010101, end: 20040101
  2. BENAZEPRIL HCL [Concomitant]
  3. LEVOTHYROXINE SODIUM [Concomitant]
  4. ATENOLOL [Concomitant]
  5. ESOMEPRAZOLE (ESOMEPRAZOLE) [Concomitant]

REACTIONS (3)
  - KNEE OPERATION [None]
  - PROCEDURAL COMPLICATION [None]
  - THROMBOSIS [None]
